FAERS Safety Report 12392238 (Version 1)
Quarter: 2016Q2

REPORT INFORMATION
  Report Type: Spontaneous
  Country: US (occurrence: US)
  Receive Date: 20160523
  Receipt Date: 20160523
  Transmission Date: 20160815
  Serious: No
  Sender: FDA-Public Use
  Company Number: US-TEVA-643734USA

PATIENT
  Sex: Female

DRUGS (1)
  1. PENICILLIN [Suspect]
     Active Substance: PENICILLIN
     Route: 065

REACTIONS (3)
  - Headache [Unknown]
  - Drug hypersensitivity [Unknown]
  - Abdominal discomfort [Unknown]
